FAERS Safety Report 23704269 (Version 1)
Quarter: 2024Q2

REPORT INFORMATION
  Report Type: Spontaneous
  Country: TW (occurrence: TW)
  Receive Date: 20240404
  Receipt Date: 20240404
  Transmission Date: 20240716
  Serious: Yes (Hospitalization, Other)
  Sender: FDA-Public Use
  Company Number: TW-SUN PHARMACEUTICAL INDUSTRIES LTD-2024R1-439323

PATIENT
  Age: 75 Year
  Sex: Male

DRUGS (26)
  1. RILUZOLE [Suspect]
     Active Substance: RILUZOLE
     Indication: Amyotrophic lateral sclerosis
     Dosage: 25 MILLIGRAM, QD
     Route: 065
     Dates: start: 20210303, end: 20210324
  2. RILUZOLE [Suspect]
     Active Substance: RILUZOLE
     Dosage: 50 MILLIGRAM, QD
     Route: 065
     Dates: start: 20210324, end: 20210414
  3. RILUZOLE [Suspect]
     Active Substance: RILUZOLE
     Dosage: 12.5 MILLIGRAM, QD
     Route: 065
     Dates: start: 20210414, end: 20210506
  4. RILUZOLE [Suspect]
     Active Substance: RILUZOLE
     Dosage: 12.5 MILLIGRAM, QD
     Route: 065
     Dates: start: 20210507, end: 20210521
  5. RILUZOLE [Suspect]
     Active Substance: RILUZOLE
     Dosage: 25 MILLIGRAM, QD
     Route: 065
     Dates: start: 20210703, end: 20210713
  6. RILUZOLE [Suspect]
     Active Substance: RILUZOLE
     Dosage: 25 MILLIGRAM, QD
     Route: 065
     Dates: start: 20210728, end: 20210818
  7. RILUZOLE [Suspect]
     Active Substance: RILUZOLE
     Dosage: 50 MILLIGRAM, QD
     Route: 065
     Dates: start: 20210828, end: 20210926
  8. RILUZOLE [Suspect]
     Active Substance: RILUZOLE
     Dosage: 50 MILLIGRAM, QD
     Route: 065
     Dates: start: 20210927, end: 20210928
  9. ROPINIROLE [Suspect]
     Active Substance: ROPINIROLE
     Indication: Amyotrophic lateral sclerosis
     Dosage: 0.75 MILLIGRAM, QD
     Route: 065
     Dates: start: 20210303, end: 20210324
  10. ROPINIROLE [Suspect]
     Active Substance: ROPINIROLE
     Dosage: 0.75 MILLIGRAM, QD
     Route: 065
     Dates: start: 20210324, end: 20210414
  11. ROPINIROLE [Suspect]
     Active Substance: ROPINIROLE
     Dosage: 2 MILLIGRAM, QD
     Route: 065
     Dates: start: 20210414, end: 20210506
  12. ROPINIROLE [Suspect]
     Active Substance: ROPINIROLE
     Dosage: 3 MILLIGRAM, QD
     Route: 065
     Dates: start: 20210507, end: 20210521
  13. ROPINIROLE [Suspect]
     Active Substance: ROPINIROLE
     Dosage: 0.75 MILLIGRAM, QD
     Route: 065
     Dates: start: 20210703, end: 20210713
  14. IBUDILAST [Suspect]
     Active Substance: IBUDILAST
     Indication: Amyotrophic lateral sclerosis
     Dosage: 20 MILLIGRAM, QD
     Route: 065
     Dates: start: 20210303, end: 20210324
  15. IBUDILAST [Suspect]
     Active Substance: IBUDILAST
     Dosage: 40 MILLIGRAM, QD
     Route: 065
     Dates: start: 20210324, end: 20210414
  16. IBUDILAST [Suspect]
     Active Substance: IBUDILAST
     Dosage: 10 MILLIGRAM, QD
     Route: 065
     Dates: start: 20210414, end: 20210506
  17. IBUDILAST [Suspect]
     Active Substance: IBUDILAST
     Dosage: 40 MILLIGRAM, QD
     Route: 065
     Dates: start: 20210507, end: 20210521
  18. IBUDILAST [Suspect]
     Active Substance: IBUDILAST
     Dosage: 20 MILLIGRAM, QD
     Route: 065
     Dates: start: 20210703, end: 20210713
  19. IBUDILAST [Suspect]
     Active Substance: IBUDILAST
     Dosage: 20 MILLIGRAM, QD
     Route: 065
     Dates: start: 20210728, end: 20210818
  20. IBUDILAST [Suspect]
     Active Substance: IBUDILAST
     Dosage: 40 MILLIGRAM, QD
     Route: 065
     Dates: start: 20210828, end: 20210926
  21. IBUDILAST [Suspect]
     Active Substance: IBUDILAST
     Dosage: 60 MILLIGRAM, QD
     Route: 065
     Dates: start: 20210927, end: 20210928
  22. SIMBRINZA [Suspect]
     Active Substance: BRIMONIDINE TARTRATE\BRINZOLAMIDE
     Indication: Product used for unknown indication
     Dosage: UNK
     Route: 047
  23. TAMOXIFEN [Suspect]
     Active Substance: TAMOXIFEN
     Indication: Amyotrophic lateral sclerosis
     Dosage: 20 MILLIGRAM, QD
     Route: 065
     Dates: start: 20210303, end: 20210324
  24. TAMOXIFEN [Suspect]
     Active Substance: TAMOXIFEN
     Dosage: 10 MILLIGRAM, QD
     Route: 065
     Dates: start: 20210324, end: 20210414
  25. TAMOXIFEN [Suspect]
     Active Substance: TAMOXIFEN
     Dosage: 40 MILLIGRAM, QD
     Route: 065
     Dates: start: 20210414, end: 20210506
  26. TAMOXIFEN [Suspect]
     Active Substance: TAMOXIFEN
     Dosage: 10 MILLIGRAM, QD
     Route: 065
     Dates: start: 20210507, end: 20210521

REACTIONS (7)
  - Blindness [Recovered/Resolved]
  - Condition aggravated [Unknown]
  - Deep vein thrombosis [Recovered/Resolved]
  - Hypotension [Recovered/Resolved]
  - Heart rate increased [Unknown]
  - Headache [Unknown]
  - Nausea [Unknown]
